FAERS Safety Report 7701433-8 (Version None)
Quarter: 2011Q3

REPORT INFORMATION
  Report Type: 
  Country: None (occurrence: None)
  Receive Date: 20110819
  Receipt Date: 20110819
  Transmission Date: 20111222
  Serious: No
  Sender: FDA-Public Use
  Company Number: None

PATIENT
  Age: 57 Year
  Sex: Male
  Weight: 80.2 kg

DRUGS (2)
  1. OFLOXACIN [Suspect]
     Indication: EYE DISORDER
     Dosage: 1 DROPS QID EYE
     Route: 047
     Dates: start: 20110301, end: 20110301
  2. OFLOXACIN [Suspect]
     Indication: EXCORIATION
     Dosage: 1 DROPS QID EYE
     Route: 047
     Dates: start: 20110301, end: 20110301

REACTIONS (2)
  - EYE SWELLING [None]
  - OCULAR HYPERAEMIA [None]
